FAERS Safety Report 9780813 (Version 1)
Quarter: 2013Q4

REPORT INFORMATION
  Report Type: Report from Study
  Country: US (occurrence: US)
  Receive Date: 20131224
  Receipt Date: 20131224
  Transmission Date: 20140711
  Serious: Yes (Death, Other)
  Sender: FDA-Public Use
  Company Number: PHEH2013US026115

PATIENT
  Sex: Female

DRUGS (1)
  1. AFINITOR [Suspect]
     Indication: BREAST CANCER FEMALE
     Dosage: 10 MG, QD

REACTIONS (2)
  - Death [Fatal]
  - Pneumothorax [Unknown]
